FAERS Safety Report 8230929-8 (Version None)
Quarter: 2012Q1

REPORT INFORMATION
  Report Type: 
  Country: None (occurrence: None)
  Receive Date: 20120323
  Receipt Date: 20120314
  Transmission Date: 20120608
  Serious: Yes (Other)
  Sender: FDA-Public Use
  Company Number: US-BAYER-2012-025220

PATIENT
  Age: 24 Year
  Sex: Female

DRUGS (1)
  1. MIRENA [Suspect]
     Indication: CONTRACEPTION
     Dosage: 20 MCG/24HR, CONT
     Route: 015
     Dates: start: 20100922, end: 20120307

REACTIONS (4)
  - VAGINAL HAEMORRHAGE [None]
  - DEVICE DISLOCATION [None]
  - UTERINE SPASM [None]
  - COMPLICATION OF DEVICE REMOVAL [None]
